FAERS Safety Report 24793811 (Version 1)
Quarter: 2024Q4

REPORT INFORMATION
  Report Type: Spontaneous
  Country: CN (occurrence: CN)
  Receive Date: 20241231
  Receipt Date: 20241231
  Transmission Date: 20250115
  Serious: Yes (Hospitalization)
  Sender: ALKEM
  Company Number: None

PATIENT
  Age: 17 Year
  Sex: Male
  Weight: 52 kg

DRUGS (7)
  1. TACROLIMUS [Interacting]
     Active Substance: TACROLIMUS
     Indication: Immunosuppressant drug therapy
     Dosage: 1 MILLIGRAM, BID (3 DAYS)
     Route: 048
  2. TACROLIMUS [Interacting]
     Active Substance: TACROLIMUS
     Dosage: 1 MILLIGRAM, QD(1 DAY)
     Route: 048
  3. TACROLIMUS [Interacting]
     Active Substance: TACROLIMUS
     Dosage: UNK (RECHALLANGE DOSE)
     Route: 048
  4. NIRMATRELVIR [Interacting]
     Active Substance: NIRMATRELVIR
     Indication: COVID-19
     Dosage: 300 MILLIGRAM, BID
     Route: 048
  5. RITONAVIR [Interacting]
     Active Substance: RITONAVIR
     Indication: COVID-19
     Dosage: 100 MILLIGRAM, BID
     Route: 048
  6. VORICONAZOLE [Concomitant]
     Active Substance: VORICONAZOLE
     Indication: Antifungal prophylaxis
     Dosage: 600 MILLIGRAM
     Route: 042
  7. VORICONAZOLE [Concomitant]
     Active Substance: VORICONAZOLE
     Dosage: 200 MILLIGRAM, BID
     Route: 042

REACTIONS (3)
  - Drug level increased [Recovered/Resolved]
  - Diarrhoea [Unknown]
  - Drug interaction [Unknown]
